FAERS Safety Report 5843593-X (Version None)
Quarter: 2008Q3

REPORT INFORMATION
  Report Type: 
  Country: None (occurrence: None)
  Receive Date: 20080813
  Receipt Date: 20080529
  Transmission Date: 20090109
  Serious: No
  Sender: FDA-Public Use
  Company Number: A0730185A

PATIENT
  Age: 69 Year
  Sex: Female

DRUGS (4)
  1. COREG CR [Suspect]
     Indication: LEFT VENTRICULAR DYSFUNCTION
     Route: 048
  2. ALTACE [Concomitant]
  3. LIPITOR [Concomitant]
  4. ZETIA [Concomitant]

REACTIONS (1)
  - DIZZINESS [None]
